FAERS Safety Report 13453247 (Version 1)
Quarter: 2017Q2

REPORT INFORMATION
  Report Type: Spontaneous
  Country: US (occurrence: US)
  Receive Date: 20170418
  Receipt Date: 20170418
  Transmission Date: 20170830
  Serious: No
  Sender: FDA-Public Use
  Company Number: US-ALLERGAN-1658146US

PATIENT
  Age: 51 Year
  Sex: Female
  Weight: 72.56 kg

DRUGS (1)
  1. LATISSE [Suspect]
     Active Substance: BIMATOPROST
     Indication: GROWTH OF EYELASHES
     Dosage: 2 GTT, QHS
     Route: 061
     Dates: start: 20160525, end: 20160525

REACTIONS (3)
  - Eyelid oedema [Recovered/Resolved with Sequelae]
  - Eyelid irritation [Recovered/Resolved with Sequelae]
  - Erythema of eyelid [Recovered/Resolved with Sequelae]

NARRATIVE: CASE EVENT DATE: 20160525
